FAERS Safety Report 23659559 (Version 3)
Quarter: 2024Q2

REPORT INFORMATION
  Report Type: Report from Study
  Country: JP (occurrence: None)
  Receive Date: 20240321
  Receipt Date: 20240501
  Transmission Date: 20240716
  Serious: Yes (Hospitalization)
  Sender: FDA-Public Use
  Company Number: 2024A064257

PATIENT
  Age: 66 Year
  Sex: Female
  Weight: 47 kg

DRUGS (16)
  1. EVUSHELD [Suspect]
     Active Substance: CILGAVIMAB\TIXAGEVIMAB
     Indication: COVID-19 prophylaxis
     Dosage: RIGHT AND LEFT BUTTOCKS
     Route: 030
     Dates: start: 20230926, end: 20230926
  2. CYTARABINE [Concomitant]
     Active Substance: CYTARABINE
     Indication: Adult T-cell lymphoma/leukaemia
     Dosage: DOSE UNKNOWN
     Route: 065
     Dates: end: 20231130
  3. METHOTREXATE [Concomitant]
     Active Substance: METHOTREXATE
     Indication: Adult T-cell lymphoma/leukaemia
     Dosage: DOSE UNKNOWN
     Route: 065
     Dates: end: 20231130
  4. PREDONINE [Concomitant]
     Active Substance: PREDNISOLONE
     Indication: Adult T-cell lymphoma/leukaemia
     Dosage: DOSE UNKNOWN
     Route: 065
     Dates: end: 20231130
  5. FILGRASTIM [Concomitant]
     Active Substance: FILGRASTIM
     Indication: Prophylaxis
     Dosage: DOSE UNKNOWN
     Route: 065
     Dates: end: 20240122
  6. EVISTA [Concomitant]
     Active Substance: RALOXIFENE HYDROCHLORIDE
     Indication: Osteoporosis
     Dosage: DOSE UNKNOWN
     Route: 048
  7. MAGNESIUM OXIDE [Concomitant]
     Active Substance: MAGNESIUM OXIDE
     Indication: Constipation
     Dosage: DOSE UNKNOWN
     Route: 048
     Dates: end: 20231130
  8. AMITIZA [Concomitant]
     Active Substance: LUBIPROSTONE
     Indication: Constipation
     Dosage: DOSE UNKNOWN
     Route: 048
  9. ELDECALCITOL [Concomitant]
     Active Substance: ELDECALCITOL
     Indication: Osteoporosis
     Dosage: DOSE UNKNOWN
     Route: 048
  10. OLANZAPINE [Concomitant]
     Active Substance: OLANZAPINE
     Indication: Prophylaxis
     Dosage: DOSE UNKNOWN
     Route: 048
     Dates: end: 20240119
  11. NOXAFIL [Concomitant]
     Active Substance: POSACONAZOLE
     Indication: Prophylaxis
     Dosage: DOSE UNKNOWN
     Route: 048
     Dates: end: 20231013
  12. SULFAMETHOXAZOLE\TRIMETHOPRIM [Concomitant]
     Active Substance: SULFAMETHOXAZOLE\TRIMETHOPRIM
     Indication: Prophylaxis
     Dosage: DOSE UNKNOWN
     Route: 048
     Dates: end: 20240227
  13. FAMOTIDINE [Concomitant]
     Active Substance: FAMOTIDINE
     Indication: Prophylaxis
     Dosage: DOSE UNKNOWN
     Route: 048
     Dates: end: 20240122
  14. MIYA-BM [Concomitant]
     Active Substance: CLOSTRIDIUM BUTYRICUM SPORES STRAIN M-55
     Indication: Prophylaxis
     Dosage: DOSE UNKNOWN
     Route: 048
  15. REBAMIPIDE [Concomitant]
     Active Substance: REBAMIPIDE
     Indication: Prophylaxis
     Dosage: DOSE UNKNOWN
     Route: 048
  16. MEROPENEM [Concomitant]
     Active Substance: MEROPENEM
     Indication: Febrile neutropenia
     Dosage: DOSE UNKNOWN
     Route: 065
     Dates: end: 20231004

REACTIONS (2)
  - Febrile neutropenia [Recovered/Resolved]
  - Neuropathy peripheral [Recovering/Resolving]

NARRATIVE: CASE EVENT DATE: 20231210
